FAERS Safety Report 9482278 (Version 1)
Quarter: 2013Q3

REPORT INFORMATION
  Report Type: Spontaneous
  Country: ZA (occurrence: ZA)
  Receive Date: 20130828
  Receipt Date: 20130828
  Transmission Date: 20140515
  Serious: Yes (Death, Other)
  Sender: FDA-Public Use
  Company Number: ZA-NOVOPROD-386026

PATIENT
  Sex: Male

DRUGS (3)
  1. LEVEMIR FLEXPEN [Suspect]
     Indication: GESTATIONAL DIABETES
     Dosage: 20 IU, QD
     Route: 064
  2. HYPERPHEN [Concomitant]
     Indication: HYPERTENSION
     Dosage: UNK
     Route: 064
  3. MAXIVIT [Concomitant]
     Route: 064

REACTIONS (3)
  - Sudden infant death syndrome [Fatal]
  - Premature baby [Unknown]
  - Foetal exposure during pregnancy [Unknown]
